FAERS Safety Report 5127655-0 (Version None)
Quarter: 2006Q4

REPORT INFORMATION
  Report Type: 
  Country: None (occurrence: None)
  Receive Date: 20061011
  Receipt Date: 20060928
  Transmission Date: 20070319
  Serious: Yes (Other)
  Sender: FDA-Public Use
  Company Number: SPVI-2006-00406

PATIENT
  Age: 13 Year
  Sex: Male

DRUGS (1)
  1. PENTASA [Suspect]
     Indication: COLITIS ULCERATIVE
     Dosage: 500 MG, 3X/DAY:TID,ORAL
     Route: 048
     Dates: start: 20060614, end: 20060727

REACTIONS (1)
  - ALVEOLITIS ALLERGIC [None]
